FAERS Safety Report 16972135 (Version 1)
Quarter: 2019Q4

REPORT INFORMATION
  Report Type: Spontaneous
  Country: SE (occurrence: SE)
  Receive Date: 20191029
  Receipt Date: 20191029
  Transmission Date: 20200122
  Serious: Yes (Death, Other)
  Sender: FDA-Public Use
  Company Number: SE-BRISTOL-MYERS SQUIBB COMPANY-BMS-2019-102263

PATIENT
  Age: 71 Year
  Sex: Female

DRUGS (3)
  1. EKVACILLIN [Suspect]
     Active Substance: CLOXACILLIN SODIUM
     Indication: ENDOCARDITIS STAPHYLOCOCCAL
     Dosage: 12 GRAM, DAILY
     Route: 042
     Dates: start: 20190810, end: 20190902
  2. ELIQUIS [Suspect]
     Active Substance: APIXABAN
     Indication: PRODUCT USED FOR UNKNOWN INDICATION
     Dosage: 5 MILLIGRAM, BID
     Route: 048
     Dates: end: 20190902
  3. ALVEDON [Suspect]
     Active Substance: ACETAMINOPHEN
     Indication: PAIN
     Dosage: 3 GRAM, DAILY
     Route: 048
     Dates: start: 20190817, end: 20190902

REACTIONS (3)
  - Metabolic acidosis [Fatal]
  - Gastrointestinal haemorrhage [Fatal]
  - Endocarditis staphylococcal [Fatal]

NARRATIVE: CASE EVENT DATE: 201909
